FAERS Safety Report 21508234 (Version 1)
Quarter: 2022Q4

REPORT INFORMATION
  Report Type: Spontaneous
  Country: US (occurrence: US)
  Receive Date: 20221026
  Receipt Date: 20221026
  Transmission Date: 20230113
  Serious: Yes (Hospitalization)
  Sender: FDA-Public Use
  Company Number: US-MYLANLABS-2022M1117125

PATIENT
  Age: 75 Year
  Sex: Male

DRUGS (2)
  1. APIXABAN [Suspect]
     Active Substance: APIXABAN
     Indication: Atrial fibrillation
     Dosage: UNK
     Route: 065
  2. LASIX [Concomitant]
     Active Substance: FUROSEMIDE
     Indication: Pleural effusion
     Dosage: UNK
     Route: 048

REACTIONS (5)
  - Pericardial effusion [Recovered/Resolved]
  - Condition aggravated [Recovered/Resolved]
  - Cardiac tamponade [Unknown]
  - Dyspnoea [Unknown]
  - Cardiac ventricular disorder [Unknown]
